FAERS Safety Report 5364964-4 (Version None)
Quarter: 2007Q2

REPORT INFORMATION
  Report Type: 
  Country: None (occurrence: None)
  Receive Date: 20070530
  Receipt Date: 20070125
  Transmission Date: 20071010
  Serious: No
  Sender: FDA-Public Use
  Company Number: 2007PV029020

PATIENT
  Age: 51 Year
  Sex: Female
  Weight: 121.564 kg

DRUGS (12)
  1. BYETTA [Suspect]
     Indication: DIABETES MELLITUS NON-INSULIN-DEPENDENT
     Dosage: 10 MCG;BID;SC   10 MCG;BID;SC    5 MCG;BID;SC
     Route: 058
     Dates: start: 20060301, end: 20061101
  2. BYETTA [Suspect]
     Indication: WEIGHT DECREASED
     Dosage: 10 MCG;BID;SC   10 MCG;BID;SC    5 MCG;BID;SC
     Route: 058
     Dates: start: 20060301, end: 20061101
  3. BYETTA [Suspect]
     Indication: DIABETES MELLITUS NON-INSULIN-DEPENDENT
     Dosage: 10 MCG;BID;SC   10 MCG;BID;SC    5 MCG;BID;SC
     Route: 058
     Dates: start: 20061101, end: 20070101
  4. BYETTA [Suspect]
     Indication: WEIGHT DECREASED
     Dosage: 10 MCG;BID;SC   10 MCG;BID;SC    5 MCG;BID;SC
     Route: 058
     Dates: start: 20061101, end: 20070101
  5. BYETTA [Suspect]
     Indication: DIABETES MELLITUS NON-INSULIN-DEPENDENT
     Dosage: 10 MCG;BID;SC   10 MCG;BID;SC    5 MCG;BID;SC
     Route: 058
     Dates: start: 20070101
  6. BYETTA [Suspect]
     Indication: WEIGHT DECREASED
     Dosage: 10 MCG;BID;SC   10 MCG;BID;SC    5 MCG;BID;SC
     Route: 058
     Dates: start: 20070101
  7. NOVOLOG MIX 70/30 [Suspect]
     Indication: DIABETES MELLITUS
     Dosage: 30 UNITS;QAM;SC   10 UNITS;QPM;SC   40 UNITS;QAM;SC   20 UNITS;SC
     Route: 058
     Dates: start: 20060101, end: 20060101
  8. NOVOLOG MIX 70/30 [Suspect]
     Indication: DIABETES MELLITUS
     Dosage: 30 UNITS;QAM;SC   10 UNITS;QPM;SC   40 UNITS;QAM;SC   20 UNITS;SC
     Route: 058
     Dates: start: 20060101, end: 20060101
  9. NOVOLOG MIX 70/30 [Suspect]
     Indication: DIABETES MELLITUS
     Dosage: 30 UNITS;QAM;SC   10 UNITS;QPM;SC   40 UNITS;QAM;SC   20 UNITS;SC
     Route: 058
     Dates: start: 20060601
  10. NOVOLOG MIX 70/30 [Suspect]
     Indication: DIABETES MELLITUS
     Dosage: 30 UNITS;QAM;SC   10 UNITS;QPM;SC   40 UNITS;QAM;SC   20 UNITS;SC
     Route: 058
     Dates: start: 20060601
  11. METFORMIN HCL [Concomitant]
  12. GLUCOTROL [Concomitant]

REACTIONS (10)
  - BLOOD GLUCOSE DECREASED [None]
  - BLOOD GLUCOSE INCREASED [None]
  - DECREASED APPETITE [None]
  - DIZZINESS [None]
  - FEELING JITTERY [None]
  - HEADACHE [None]
  - INJECTION SITE IRRITATION [None]
  - INSOMNIA [None]
  - NAUSEA [None]
  - VERTIGO [None]
